FAERS Safety Report 6592793-2 (Version None)
Quarter: 2010Q1

REPORT INFORMATION
  Report Type: 
  Country: None (occurrence: None)
  Receive Date: 20100212
  Receipt Date: 20100125
  Transmission Date: 20100710
  Serious: No
  Sender: FDA-Public Use
  Company Number: DSU-2010-00276

PATIENT
  Sex: Female

DRUGS (1)
  1. WELCHOL [Suspect]
     Indication: HYPERLIPIDAEMIA
     Dosage: ,PER ORAL
     Route: 048
     Dates: start: 20091201

REACTIONS (4)
  - DRUG ADMINISTRATION ERROR [None]
  - DYSPHAGIA [None]
  - TABLET ISSUE [None]
  - WRONG TECHNIQUE IN DRUG USAGE PROCESS [None]
